FAERS Safety Report 8777424 (Version 2)
Quarter: 2012Q4

REPORT INFORMATION
  Report Type: 
  Country: JP (occurrence: JP)
  Receive Date: 20120911
  Receipt Date: 20120921
  Transmission Date: 20130627
  Serious: Yes (Life-Threatening, Hospitalization)
  Sender: FDA-Public Use
  Company Number: JP-BRISTOL-MYERS SQUIBB COMPANY-16929325

PATIENT
  Age: 72 Year
  Sex: Male
  Weight: 64 kg

DRUGS (11)
  1. PARAPLATIN INJ 150 MG [Suspect]
     Indication: LUNG NEOPLASM MALIGNANT
     Route: 041
     Dates: start: 20120720, end: 20120817
  2. GEMCITABINE [Concomitant]
     Indication: LUNG NEOPLASM MALIGNANT
  3. ALOXI [Concomitant]
  4. DEXART [Concomitant]
  5. BLOPRESS [Concomitant]
  6. AMLODIPINE [Concomitant]
  7. ALOSITOL [Concomitant]
  8. EPADEL [Concomitant]
  9. FAMOTIDINE [Concomitant]
  10. PREDNISOLONE [Concomitant]
  11. FLIVAS [Concomitant]

REACTIONS (1)
  - Anaphylactic reaction [Recovered/Resolved]
